FAERS Safety Report 22621874 (Version 1)
Quarter: 2023Q2

REPORT INFORMATION
  Report Type: Spontaneous
  Country: US (occurrence: US)
  Receive Date: 20230620
  Receipt Date: 20230620
  Transmission Date: 20230722
  Serious: Yes (Other)
  Sender: FDA-Public Use
  Company Number: US-GLAND PHARMA LIMITED-2023US002058

PATIENT

DRUGS (2)
  1. FOSCARNET SODIUM [Suspect]
     Active Substance: FOSCARNET SODIUM
     Indication: Cytomegalovirus gastroenteritis
     Dosage: UNK
     Route: 065
  2. FOSCARNET SODIUM [Suspect]
     Active Substance: FOSCARNET SODIUM
     Indication: Sepsis

REACTIONS (3)
  - Cholestasis [Not Recovered/Not Resolved]
  - Vanishing bile duct syndrome [Not Recovered/Not Resolved]
  - Product use in unapproved indication [Unknown]
